FAERS Safety Report 9336876 (Version 1)
Quarter: 2013Q2

REPORT INFORMATION
  Report Type: Spontaneous
  Country: US (occurrence: US)
  Receive Date: 20130607
  Receipt Date: 20130607
  Transmission Date: 20140414
  Serious: Yes (Hospitalization, Other)
  Sender: FDA-Public Use
  Company Number: US-FRI-1000045618

PATIENT
  Sex: Female
  Weight: 77 kg

DRUGS (2)
  1. CELEXA [Suspect]
     Indication: DEPRESSION
     Dates: start: 201304, end: 2013
  2. ZYVOX [Suspect]
     Indication: PNEUMONIA
     Dosage: 1200 MG
     Dates: start: 20130423, end: 20130430

REACTIONS (3)
  - Serotonin syndrome [Recovered/Resolved]
  - General physical health deterioration [Unknown]
  - Pulmonary fibrosis [Unknown]
